FAERS Safety Report 5175434-0 (Version None)
Quarter: 2006Q4

REPORT INFORMATION
  Report Type: 
  Country: None (occurrence: None)
  Receive Date: 20061215
  Receipt Date: 20061211
  Transmission Date: 20070319
  Serious: Yes (Hospitalization)
  Sender: FDA-Public Use
  Company Number: LB-JNJFOC-20061202639

PATIENT
  Age: 68 Year
  Sex: Female

DRUGS (10)
  1. ACETAMINOPHEN [Suspect]
     Dosage: 1000MG, ONCE, TOTAL, ONE MONTH AFTER DISCHARGE FROM THE HOSPITAL
  2. ACETAMINOPHEN [Suspect]
     Dosage: 1000MG, ONCE, TOTAL ON HOSPITAL DAY 7
  3. ACETAMINOPHEN [Suspect]
     Indication: HEADACHE
     Dosage: UNKNOWN AMOUNT, ONCE, ON HOSPITAL DAY 4
  4. ACETAMINOPHEN [Suspect]
     Indication: DRUG USE FOR UNKNOWN INDICATION
     Dosage: UNKNOWN AMOUNT, ONCE, ON HOSPITAL DAY 2
  5. GLYBURIDE [Concomitant]
  6. AMLODIPINE [Concomitant]
  7. VALSARTAN [Concomitant]
  8. FUROSEMIDE [Concomitant]
  9. AMIODARONE HCL [Concomitant]
  10. SIMVASTATIN [Concomitant]

REACTIONS (2)
  - HAEMOLYTIC ANAEMIA [None]
  - HIDRADENITIS [None]
